FAERS Safety Report 12081768 (Version 2)
Quarter: 2016Q1

REPORT INFORMATION
  Report Type: Report from Study
  Country: AU (occurrence: AU)
  Receive Date: 20160216
  Receipt Date: 20160225
  Transmission Date: 20160526
  Serious: No
  Sender: FDA-Public Use
  Company Number: AU-ABBVIE-15P-008-1522030-00

PATIENT
  Age: 61 Year
  Sex: Female

DRUGS (2)
  1. LOVAN [Concomitant]
     Active Substance: FLUOXETINE HYDROCHLORIDE
     Indication: DEPRESSION
  2. VIEKIRA PAK [Suspect]
     Active Substance: DASABUVIR\OMBITASVIR\PARITAPREVIR\RITONAVIR
     Indication: HEPATITIS C
     Dosage: AV1X 2 IN THE MORNING; AV2X1 TWICE DAILY
     Route: 048
     Dates: start: 20151121

REACTIONS (13)
  - Hunger [Unknown]
  - Hyperphagia [Unknown]
  - Fatigue [Unknown]
  - Memory impairment [Unknown]
  - Somnolence [Recovered/Resolved]
  - Gait disturbance [Unknown]
  - Cardiac disorder [Unknown]
  - Weight increased [Unknown]
  - Hypertension [Unknown]
  - Weight loss poor [Unknown]
  - Disturbance in attention [Unknown]
  - Sleep disorder [Unknown]
  - Mobility decreased [Unknown]

NARRATIVE: CASE EVENT DATE: 20151121
